FAERS Safety Report 19420812 (Version 2)
Quarter: 2021Q3

REPORT INFORMATION
  Report Type: Spontaneous
  Country: GB (occurrence: GB)
  Receive Date: 20210616
  Receipt Date: 20210708
  Transmission Date: 20211014
  Serious: Yes (Death)
  Sender: FDA-Public Use
  Company Number: GB-OCTA-HAPL02721GB

PATIENT
  Age: 42 Year
  Sex: Female

DRUGS (3)
  1. AMITRIPTYLINE [Concomitant]
     Active Substance: AMITRIPTYLINE
     Indication: PRODUCT USED FOR UNKNOWN INDICATION
     Dates: start: 20210226
  2. ASTRAZENECA COVID?19 VACCINE [Suspect]
     Active Substance: AZD-1222
     Indication: PRODUCT USED FOR UNKNOWN INDICATION
     Dosage: DOSE 1
     Dates: start: 20210502
  3. MICROGYNON [Concomitant]
     Active Substance: ETHINYL ESTRADIOL\LEVONORGESTREL ACETATE
     Indication: ORAL CONTRACEPTION
     Dates: start: 20210518

REACTIONS (13)
  - Multiple organ dysfunction syndrome [Fatal]
  - Cardiac arrest [Fatal]
  - Subarachnoid haemorrhage [Fatal]
  - Agitation [Fatal]
  - Pulmonary embolism [Fatal]
  - Pulseless electrical activity [Fatal]
  - Poor peripheral circulation [Fatal]
  - Pulmonary embolism [Fatal]
  - Activated partial thromboplastin time prolonged [Fatal]
  - Lymphocytosis [Fatal]
  - Dyspnoea [Fatal]
  - Confusional state [Fatal]
  - Thrombocytopenia [Fatal]

NARRATIVE: CASE EVENT DATE: 20210530
